FAERS Safety Report 8845369 (Version 1)
Quarter: 2012Q4

REPORT INFORMATION
  Report Type: Spontaneous
  Country: US (occurrence: None)
  Receive Date: 20121015
  Receipt Date: 20121015
  Transmission Date: 20130627
  Serious: Yes (Hospitalization)
  Sender: FDA-Public Use
  Company Number: 2012VX004421

PATIENT
  Age: 56 Year
  Sex: Female

DRUGS (13)
  1. TIMOPTIC [Suspect]
     Route: 047
  2. TOPIRAMATE [Suspect]
  3. TOPIRAMATE [Suspect]
  4. ACETAZOLAMIDE [Suspect]
     Route: 042
  5. BRIMONIDINE TARTRATE [Suspect]
     Route: 047
  6. PREDNISOLONE [Suspect]
     Route: 047
  7. ATROPINE [Suspect]
     Dosage: ; QH; OPH
     Route: 047
  8. VENLAFAXINE HYDROCHLORIDE [Concomitant]
  9. ATORVASTATIN [Concomitant]
  10. BUSPIRONE HYDROCHLORIDE [Concomitant]
  11. MAXIDE [Concomitant]
  12. ESTRADIOL [Concomitant]
  13. PROGESTERONE [Concomitant]

REACTIONS (6)
  - Vision blurred [None]
  - Eye pain [None]
  - Photopsia [None]
  - Photophobia [None]
  - Visual field defect [None]
  - Reading disorder [None]
